FAERS Safety Report 15201403 (Version 1)
Quarter: 2018Q4

REPORT INFORMATION
  Report Type: Spontaneous
  Country: DE (occurrence: DE)
  Receive Date: 20180726
  Receipt Date: 20180726
  Transmission Date: 20190204
  Serious: Yes (Life-Threatening, Hospitalization)
  Sender: FDA-Public Use
  Company Number: DE-SA-2018SA201492

PATIENT
  Age: 80 Year
  Sex: Female
  Weight: 148 kg

DRUGS (16)
  1. ENALAPRIL MALEATE. [Suspect]
     Active Substance: ENALAPRIL MALEATE
     Dosage: 20 MG, QD
     Route: 048
  2. ACTRAPID [Suspect]
     Active Substance: INSULIN HUMAN
     Indication: TYPE 2 DIABETES MELLITUS
     Dosage: 30-18-16 IU
     Route: 065
     Dates: start: 200802
  3. PREDNISOLON [PREDNISOLONE] [Concomitant]
     Dosage: 20 MG, QD
     Route: 048
     Dates: start: 200801
  4. ENALAPRIL MALEATE. [Suspect]
     Active Substance: ENALAPRIL MALEATE
     Indication: HYPERTENSION
     Dosage: 20 MG, UNK
     Route: 048
  5. OMEPRAZOLE. [Concomitant]
     Active Substance: OMEPRAZOLE
     Indication: PROPHYLAXIS AGAINST GASTROINTESTINAL ULCER
     Dosage: 20 MG, UNK
     Route: 048
  6. RISPERIDONE. [Concomitant]
     Active Substance: RISPERIDONE
     Dosage: 0.5 MG, QD
     Route: 048
  7. PARACODIN [DIHYDROCODEINE] [Concomitant]
     Indication: CHRONIC OBSTRUCTIVE PULMONARY DISEASE
     Dosage: 30 GTT DROPS, UNK
     Route: 048
     Dates: start: 20070111
  8. TORASEMIDE [Concomitant]
     Active Substance: TORSEMIDE
     Indication: HYPERTENSION
     Dosage: 5 MG, QD
     Route: 048
  9. LANTUS [Suspect]
     Active Substance: INSULIN GLARGINE
     Indication: PRODUCT USED FOR UNKNOWN INDICATION
     Dosage: 26 IU, UNK
     Route: 065
     Dates: start: 20100317
  10. LANTUS [Interacting]
     Active Substance: INSULIN GLARGINE
     Dosage: 36 IU, QD
     Route: 058
     Dates: start: 20080219, end: 20100316
  11. L-THYROXIN [LEVOTHYROXINE] [Concomitant]
     Indication: HYPOTHYROIDISM
     Dosage: 75 UG, QD
     Route: 048
  12. RISPERIDONE. [Concomitant]
     Active Substance: RISPERIDONE
     Indication: DEMENTIA
     Dosage: 1 MG, UNK
     Route: 065
  13. SALBUTAMOL [Concomitant]
     Active Substance: ALBUTEROL
     Indication: CHRONIC OBSTRUCTIVE PULMONARY DISEASE
     Dosage: 0.4 MG, QD
     Route: 055
     Dates: start: 200801
  14. CALCIMAGON [CALCIUM] [Concomitant]
     Indication: OSTEOPOROSIS PROPHYLAXIS
     Dosage: 4 UG, QD
     Route: 048
     Dates: start: 200802
  15. ACETYLSALICYLIC ACID [Concomitant]
     Active Substance: ASPIRIN
     Indication: HEART VALVE INCOMPETENCE
     Dosage: 100 MG, QD
     Route: 048
  16. CARVEDILOL. [Suspect]
     Active Substance: CARVEDILOL
     Indication: HYPERTENSION
     Dosage: 26 MG, UNK
     Route: 048

REACTIONS (7)
  - C-reactive protein increased [Unknown]
  - Drug interaction [Unknown]
  - Haematocrit decreased [Unknown]
  - Glycosylated haemoglobin increased [Unknown]
  - Haemoglobin decreased [Unknown]
  - Blood creatinine increased [Unknown]
  - Hypoglycaemia [Unknown]

NARRATIVE: CASE EVENT DATE: 20080317
